FAERS Safety Report 7124955-X (Version None)
Quarter: 2010Q4

REPORT INFORMATION
  Report Type: 
  Country: None (occurrence: None)
  Receive Date: 20101129
  Receipt Date: 20101119
  Transmission Date: 20110411
  Serious: Yes (Other)
  Sender: FDA-Public Use
  Company Number: US-ABBOTT-10P-163-0686980-00

PATIENT
  Sex: Male
  Weight: 93.07 kg

DRUGS (12)
  1. NIASPAN [Suspect]
     Indication: HIGH DENSITY LIPOPROTEIN DECREASED
     Dosage: AT BEDTIME
     Dates: start: 20090901, end: 20101001
  2. NIASPAN [Suspect]
     Dosage: AT BEDTIME
     Dates: start: 20101001
  3. DIGOXIN [Concomitant]
     Indication: CARDIAC FUNCTION TEST ABNORMAL
  4. RANITIDINE [Concomitant]
     Indication: ABDOMINAL DISCOMFORT
  5. CARVEDILOL [Concomitant]
     Indication: ARRHYTHMIA
  6. PACERONE [Concomitant]
     Indication: ARRHYTHMIA
  7. EFFIENT [Concomitant]
     Indication: CARDIAC DISORDER
  8. SPIRONOLACTONE [Concomitant]
     Indication: CARDIAC DISORDER
  9. ENALAPRIL MALEATE [Concomitant]
     Indication: HYPERTENSION
  10. ENALAPRIL MALEATE [Concomitant]
  11. LIPITOR [Concomitant]
     Indication: BLOOD CHOLESTEROL INCREASED
  12. LIPITOR [Concomitant]

REACTIONS (7)
  - ARTERIAL OCCLUSIVE DISEASE [None]
  - CARDIAC FUNCTION TEST ABNORMAL [None]
  - DIZZINESS [None]
  - FEELING ABNORMAL [None]
  - FLUSHING [None]
  - IMPLANTABLE DEFIBRILLATOR INSERTION [None]
  - TUNNEL VISION [None]
